FAERS Safety Report 9208141 (Version 2)
Quarter: 2013Q4

REPORT INFORMATION
  Report Type: Spontaneous
  Country: GB (occurrence: GB)
  Receive Date: 20130403
  Receipt Date: 20131123
  Transmission Date: 20140711
  Serious: Yes (Hospitalization)
  Sender: FDA-Public Use
  Company Number: PHFR2013GB001973

PATIENT
  Age: 51 Year
  Sex: Female

DRUGS (2)
  1. CARBAMAZEPINE [Suspect]
     Indication: EPILEPSY
     Dosage: 1000 MG, DAILY (600MG IN THE MORNING AND 400MG IN THE EVENING)
     Route: 048
  2. CLARITHROMYCIN [Suspect]
     Indication: LOCALISED INFECTION
     Dosage: 500 MG TID
     Route: 048
     Dates: start: 20130228, end: 20130303

REACTIONS (4)
  - Gait disturbance [Recovered/Resolved]
  - Paraesthesia [Recovered/Resolved]
  - Toxicity to various agents [Recovered/Resolved]
  - Nausea [Recovered/Resolved]
